FAERS Safety Report 21953925 (Version 2)
Quarter: 2023Q1

REPORT INFORMATION
  Report Type: Spontaneous
  Country: US (occurrence: US)
  Receive Date: 20230204
  Receipt Date: 20230216
  Transmission Date: 20230418
  Serious: Yes (Other)
  Sender: FDA-Public Use
  Company Number: US-BAXTER-2023BAX011873

PATIENT
  Sex: Female

DRUGS (4)
  1. DIANEAL [Suspect]
     Active Substance: CALCIUM CHLORIDE\DEXTROSE\MAGNESIUM CHLORIDE\SODIUM CHLORIDE\SODIUM LACTATE
     Indication: End stage renal disease
     Dosage: VIA CYCLER (AUTOMATED PERITONEAL DIALYSIS)
     Route: 033
     Dates: start: 20220107
  2. DIANEAL [Suspect]
     Active Substance: CALCIUM CHLORIDE\DEXTROSE\MAGNESIUM CHLORIDE\SODIUM CHLORIDE\SODIUM LACTATE
     Indication: End stage renal disease
     Dosage: VIA CYCLER (AUTOMATED PERITONEAL DIALYS
     Route: 033
     Dates: start: 20220107
  3. EXTRANEAL [Suspect]
     Active Substance: CALCIUM CHLORIDE\ICODEXTRIN\MAGNESIUM CHLORIDE\SODIUM CHLORIDE\SODIUM LACTATE
     Indication: End stage renal disease
     Dosage: VIA CYCLER (AUTOMATED PERITONEAL DIALYS
     Route: 033
     Dates: start: 20220322
  4. INSULIN NOS [Concomitant]
     Active Substance: INSULIN NOS
     Indication: Diabetes mellitus
     Route: 065

REACTIONS (5)
  - Peritoneal dialysis complication [Unknown]
  - Hyperglycaemia [Recovering/Resolving]
  - Abnormal weight gain [Recovering/Resolving]
  - Peritoneal effluent abnormal [Unknown]
  - Blood pressure fluctuation [Recovering/Resolving]
